FAERS Safety Report 8254821-8 (Version None)
Quarter: 2012Q2

REPORT INFORMATION
  Report Type: 
  Country: None (occurrence: None)
  Receive Date: 20120403
  Receipt Date: 20120328
  Transmission Date: 20120825
  Serious: Yes (Other)
  Sender: FDA-Public Use
  Company Number: PHHY2012GR027440

PATIENT
  Age: 47 Year
  Sex: Female

DRUGS (1)
  1. EXJADE [Suspect]

REACTIONS (3)
  - VISUAL ACUITY REDUCED [None]
  - VISION BLURRED [None]
  - OPTIC NEURITIS [None]
